FAERS Safety Report 20200756 (Version 1)
Quarter: 2021Q4

REPORT INFORMATION
  Report Type: Spontaneous
  Country: GB (occurrence: GB)
  Receive Date: 20211217
  Receipt Date: 20211217
  Transmission Date: 20220303
  Serious: Yes (Other)
  Sender: FDA-Public Use
  Company Number: None

PATIENT
  Age: 82 Year
  Sex: Male
  Weight: 66 kg

DRUGS (23)
  1. DICLOFENAC SODIUM [Suspect]
     Active Substance: DICLOFENAC SODIUM
     Indication: Basal cell carcinoma
     Dosage: 3%
     Route: 065
     Dates: start: 20211130
  2. AMLODIPINE [Concomitant]
     Active Substance: AMLODIPINE BESYLATE
     Dosage: 1 DOSAGE FORMS DAILY;
     Dates: start: 20201120
  3. ASPIRIN [Concomitant]
     Active Substance: ASPIRIN
     Dosage: 1 DOSAGE FORMS DAILY;
     Dates: start: 20201120, end: 20210927
  4. AVEENO [Concomitant]
     Active Substance: DIMETHICONE\HOMOSALATE\OCTINOXATE\OCTISALATE\TITANIUM DIOXIDE
     Dosage: USE AS DIRECTED
     Dates: start: 20201120
  5. BECLOMETHASONE DIPROPIONATE [Concomitant]
     Active Substance: BECLOMETHASONE DIPROPIONATE
     Dosage: 4 DOSAGE FORMS DAILY;  PUFFS
     Dates: start: 20211105
  6. BETAMETHASONE SODIUM PHOSPHATE [Concomitant]
     Active Substance: BETAMETHASONE SODIUM PHOSPHATE
     Dosage: TWO TO THREE DROPS EACH NOSTRIL THREE TIMES DAILY
     Route: 045
     Dates: start: 20211108, end: 20211113
  7. BISOPROLOL [Concomitant]
     Active Substance: BISOPROLOL
     Dosage: 1 DOSAGE FORMS DAILY;
     Dates: start: 20210422
  8. CALCIUM CARBONATE\CHOLECALCIFEROL [Concomitant]
     Active Substance: CALCIUM CARBONATE\CHOLECALCIFEROL
     Dosage: 1 DOSAGE FORMS DAILY;
     Dates: start: 20201120, end: 20210917
  9. CARBOCYSTEINE [Concomitant]
     Active Substance: CARBOCYSTEINE
     Dosage: TAKE 1 OR 2 UP TO 3 TIMES A DAY
     Dates: start: 20210827, end: 20211005
  10. ISOSORBIDE MONONITRATE [Concomitant]
     Active Substance: ISOSORBIDE MONONITRATE
     Dosage: 30 MILLIGRAM DAILY; TAKE HALF (30MG) ONCE A DAY
     Dates: start: 20201120, end: 20210917
  11. COCODAMOL [Concomitant]
     Active Substance: ACETAMINOPHEN\CODEINE PHOSPHATE
     Dosage: TAKE 1 OR 2 4 TIMES/DAY (DO NOT GIVEN WITH PARA...
     Dates: start: 20201120
  12. COSMOCOL [Concomitant]
     Dosage: 2 DOSAGE FORMS DAILY; SACHET ,AS DIRECTED
     Dates: start: 20201120
  13. LANOLIN\LIGHT MINERAL OIL\PARAFFIN [Concomitant]
     Active Substance: LANOLIN\LIGHT MINERAL OIL\PARAFFIN
     Dosage: 3 DOSAGE FORMS DAILY; APPLY TDS
     Dates: start: 20201120
  14. FERROUS SULFATE [Concomitant]
     Active Substance: FERROUS SULFATE
     Dosage: 3 DOSAGE FORMS DAILY;
     Dates: start: 20210224, end: 20210917
  15. FINASTERIDE [Concomitant]
     Active Substance: FINASTERIDE
     Dosage: 1 DOSAGE FORMS DAILY;
     Dates: start: 20201120
  16. FOLIC ACID [Concomitant]
     Active Substance: FOLIC ACID
     Dosage: 1 DOSAGE FORMS DAILY;
     Dates: start: 20201120
  17. NITROGLYCERIN [Concomitant]
     Active Substance: NITROGLYCERIN
     Dosage: PUT ONE PUFF UNDER THE TONGUE AS NEEDED
     Route: 060
     Dates: start: 20201120
  18. HYDROXOCOBALAMIN [Concomitant]
     Active Substance: HYDROXOCOBALAMIN
     Dosage: 1DF
     Dates: start: 20211119
  19. LANSOPRAZOLE [Concomitant]
     Active Substance: LANSOPRAZOLE
     Dosage: 1 DOSAGE FORMS DAILY; 30 MINUTES BEFORE FOOD
     Dates: start: 20210901, end: 20210908
  20. OMEPRAZOLE [Concomitant]
     Active Substance: OMEPRAZOLE
     Dosage: 1 DOSAGE FORMS DAILY;
     Dates: start: 20210908
  21. ROSUVASTATIN [Concomitant]
     Active Substance: ROSUVASTATIN
     Dosage: 1 DOSAGE FORMS DAILY;
     Dates: start: 20201120
  22. SENNA [Concomitant]
     Active Substance: SENNA LEAF\SENNOSIDES\SENNOSIDES A AND B
     Dosage: TAKE 1 OR 2 AT NIGHT WHEN REQUIRED
     Dates: start: 20201120
  23. ZOPICLONE [Concomitant]
     Active Substance: ZOPICLONE
     Dosage: 1 DOSAGE FORMS DAILY; NIGHTLY
     Dates: start: 20211001, end: 20211029

REACTIONS (2)
  - Contusion [Recovering/Resolving]
  - Skin exfoliation [Recovering/Resolving]

NARRATIVE: CASE EVENT DATE: 20211130
